FAERS Safety Report 14490418 (Version 1)
Quarter: 2018Q1

REPORT INFORMATION
  Report Type: Spontaneous
  Country: DE (occurrence: DE)
  Receive Date: 20180206
  Receipt Date: 20180206
  Transmission Date: 20180509
  Serious: Yes (Hospitalization)
  Sender: FDA-Public Use
  Company Number: DE-ROCHE-2066306

PATIENT
  Age: 54 Year
  Sex: Male

DRUGS (10)
  1. BIPERIDEN [Concomitant]
     Active Substance: BIPERIDEN
  2. CHLORPROMAZINE. [Concomitant]
     Active Substance: CHLORPROMAZINE
  3. PANCURONIUM [Concomitant]
     Active Substance: PANCURONIUM
  4. PROMETHAZINE [Concomitant]
     Active Substance: PROMETHAZINE\PROMETHAZINE HYDROCHLORIDE
  5. DIAZEPAM. [Suspect]
     Active Substance: DIAZEPAM
     Indication: SEDATION
     Dosage: FROM 60 TO 240 MG PER DAY
     Route: 042
  6. FENTANYL. [Concomitant]
     Active Substance: FENTANYL
  7. PETHIDINE [Concomitant]
     Active Substance: MEPERIDINE
     Route: 065
  8. DIAZEPAM. [Suspect]
     Active Substance: DIAZEPAM
     Indication: MUSCLE RELAXANT THERAPY
  9. DROPERIDOL. [Concomitant]
     Active Substance: DROPERIDOL
  10. PHENOBARBITONE [Concomitant]
     Active Substance: PHENOBARBITAL
     Dosage: FROM DAY 14 TO DAY 21
     Route: 065

REACTIONS (1)
  - Depressed level of consciousness [Not Recovered/Not Resolved]
